FAERS Safety Report 7915075-2 (Version None)
Quarter: 2011Q4

REPORT INFORMATION
  Report Type: 
  Country: None (occurrence: None)
  Receive Date: 20111115
  Receipt Date: 20111114
  Transmission Date: 20120403
  Serious: No
  Sender: FDA-Public Use
  Company Number: US-PFIZER INC-2011278773

PATIENT
  Sex: Male
  Weight: 83.9 kg

DRUGS (3)
  1. GEODON [Suspect]
     Indication: ANXIETY
     Dosage: 60 MG, 1X/DAY
     Route: 048
     Dates: start: 20070101
  2. PROZAC [Concomitant]
     Indication: ANXIETY
  3. PROZAC [Concomitant]
     Indication: DEPRESSION
     Dosage: UNK

REACTIONS (1)
  - ANXIETY [None]
